FAERS Safety Report 13350745 (Version 1)
Quarter: 2017Q1

REPORT INFORMATION
  Report Type: Spontaneous
  Country: NL (occurrence: NL)
  Receive Date: 20170320
  Receipt Date: 20170320
  Transmission Date: 20170429
  Serious: Yes (Other)
  Sender: FDA-Public Use
  Company Number: NL-PFIZER INC-2017111999

PATIENT
  Age: 37 Year
  Sex: Female
  Weight: 80 kg

DRUGS (2)
  1. TRANEXAMIC ACID. [Suspect]
     Active Substance: TRANEXAMIC ACID
     Indication: VAGINAL HAEMORRHAGE
     Dosage: 2 DF, 3X/DAY
     Route: 048
     Dates: start: 20170224, end: 20170301
  2. ORGAMETRIL [Interacting]
     Active Substance: LYNESTRENOL
     Dosage: 5 MG, 2X/DAY
     Route: 048
     Dates: start: 20170224, end: 2017

REACTIONS (2)
  - Drug interaction [Recovering/Resolving]
  - Pulmonary embolism [Recovering/Resolving]

NARRATIVE: CASE EVENT DATE: 2017
